FAERS Safety Report 11843810 (Version 1)
Quarter: 2015Q4

REPORT INFORMATION
  Report Type: Not Available
  Country: CA (occurrence: CA)
  Receive Date: 20151217
  Receipt Date: 20151217
  Transmission Date: 20160305
  Serious: Yes (Other)
  Sender: FDA-Public Use
  Company Number: CA-BEH-2015056245

PATIENT
  Age: 22 Year
  Sex: Male

DRUGS (1)
  1. ALBUREX [Suspect]
     Active Substance: ALBUMIN (HUMAN)
     Indication: PANCREATITIS ACUTE
     Route: 042

REACTIONS (2)
  - Hypersensitivity [Recovered/Resolved]
  - Acute respiratory distress syndrome [Recovered/Resolved]
